FAERS Safety Report 9494014 (Version 3)
Quarter: 2013Q4

REPORT INFORMATION
  Report Type: Report from Study
  Country: AU (occurrence: AU)
  Receive Date: 20130903
  Receipt Date: 20131025
  Transmission Date: 20140711
  Serious: Yes (Hospitalization, Other)
  Sender: FDA-Public Use
  Company Number: AU-BRISTOL-MYERS SQUIBB COMPANY-16381121

PATIENT
  Age: 65 Year
  Sex: Male
  Weight: 88 kg

DRUGS (14)
  1. ORENCIA [Suspect]
     Indication: RHEUMATOID ARTHRITIS
     Route: 042
     Dates: start: 20110428
  2. METHOTREXATE [Concomitant]
  3. FOLIC ACID [Concomitant]
  4. PREDNISONE [Concomitant]
  5. SLOW-K [Concomitant]
  6. LASIX [Concomitant]
  7. GLICLAZIDE [Concomitant]
  8. METOPROLOL [Concomitant]
  9. WARFARIN [Concomitant]
  10. ASPIRIN [Concomitant]
  11. CITALOPRAM [Concomitant]
  12. ATORVASTATIN [Concomitant]
  13. METFORMIN [Concomitant]
  14. ARAVA [Concomitant]

REACTIONS (4)
  - Convulsion [Unknown]
  - Lower respiratory tract infection [Unknown]
  - Dyspnoea [Unknown]
  - Pleural effusion [Unknown]
